FAERS Safety Report 9098545 (Version 3)
Quarter: 2013Q2

REPORT INFORMATION
  Report Type: Spontaneous
  Country: CA (occurrence: CA)
  Receive Date: 20130213
  Receipt Date: 20130514
  Transmission Date: 20140414
  Serious: Yes (Death, Hospitalization)
  Sender: FDA-Public Use
  Company Number: CA-CELGENEUS-028-21880-12072929

PATIENT
  Age: 71 Year
  Sex: Female

DRUGS (65)
  1. CALCIUM CARBONATE [Concomitant]
     Indication: ADVERSE EVENT
     Route: 065
     Dates: start: 20120729, end: 20120805
  2. CALCIUM CARBONATE [Concomitant]
     Route: 065
     Dates: start: 20121122, end: 20121226
  3. MAGNESIUM SULFATE [Concomitant]
     Indication: ADVERSE EVENT
     Route: 065
     Dates: start: 20120729, end: 20120729
  4. MAGNESIUM SULFATE [Concomitant]
     Route: 065
     Dates: start: 20120802, end: 20120802
  5. CALCIUM GLUCONATE [Concomitant]
     Indication: ADVERSE EVENT
     Route: 065
     Dates: start: 20120729, end: 20120730
  6. PROCHLORPERAZINE [Concomitant]
     Indication: ADVERSE EVENT
     Route: 065
     Dates: start: 20120729, end: 20120802
  7. LEVOFLOXACIN [Concomitant]
     Indication: ADVERSE EVENT
     Route: 065
     Dates: start: 20120725, end: 20120802
  8. POTASSIUM CHLORIDE [Concomitant]
     Indication: ADVERSE EVENT
     Route: 065
     Dates: start: 20120801, end: 20120805
  9. POTASSIUM CHLORIDE [Concomitant]
     Route: 065
     Dates: start: 20121110, end: 20121126
  10. ALTEPLASE [Concomitant]
     Indication: ADVERSE EVENT
     Route: 065
     Dates: start: 20120801, end: 20120801
  11. ALTEPLASE [Concomitant]
     Route: 065
     Dates: start: 20121112, end: 20121129
  12. ONDANSETRON [Concomitant]
     Indication: ADVERSE EVENT
     Route: 065
     Dates: start: 20120726, end: 20120802
  13. ASA [Concomitant]
     Indication: PRODUCT USED FOR UNKNOWN INDICATION
     Route: 065
     Dates: start: 20120704
  14. DOMPERIDONE [Concomitant]
     Indication: ADVERSE EVENT
     Route: 065
     Dates: start: 20120808
  15. PAMIDRONATE [Concomitant]
     Indication: PRODUCT USED FOR UNKNOWN INDICATION
     Route: 065
     Dates: start: 20100415
  16. TYLENOL ES [Concomitant]
     Indication: PRODUCT USED FOR UNKNOWN INDICATION
     Route: 065
     Dates: start: 20020101
  17. FUROSEMIDE [Concomitant]
     Indication: PRODUCT USED FOR UNKNOWN INDICATION
     Route: 065
     Dates: start: 20121106, end: 20121114
  18. FUROSEMIDE [Concomitant]
     Route: 065
     Dates: start: 20121123, end: 20121127
  19. IPRATROPIUM [Concomitant]
     Indication: PRODUCT USED FOR UNKNOWN INDICATION
     Route: 065
     Dates: start: 20121106, end: 20121119
  20. SALBUTAMOL [Concomitant]
     Indication: PRODUCT USED FOR UNKNOWN INDICATION
     Route: 065
     Dates: start: 20121106, end: 20121119
  21. SODIUM POLYSTYRENE SULFONATE [Concomitant]
     Indication: PRODUCT USED FOR UNKNOWN INDICATION
     Route: 065
     Dates: start: 20121107, end: 20121107
  22. LACTULOSE [Concomitant]
     Indication: PRODUCT USED FOR UNKNOWN INDICATION
     Route: 065
     Dates: start: 20121107, end: 20121108
  23. LACTULOSE [Concomitant]
     Route: 065
     Dates: start: 20121126, end: 20121226
  24. CEFTAZIDIME [Concomitant]
     Indication: PRODUCT USED FOR UNKNOWN INDICATION
     Route: 065
     Dates: start: 20121107, end: 20121108
  25. PIPERACILLIN-TAZOBACTAM [Concomitant]
     Indication: PRODUCT USED FOR UNKNOWN INDICATION
     Route: 065
     Dates: start: 20121108, end: 20121115
  26. PIPERACILLIN-TAZOBACTAM [Concomitant]
     Route: 065
     Dates: start: 20121127, end: 20121130
  27. PIPERACILLIN-TAZOBACTAM [Concomitant]
     Route: 065
     Dates: start: 20121203, end: 20121220
  28. VANCOMYCIN [Concomitant]
     Indication: PRODUCT USED FOR UNKNOWN INDICATION
     Route: 065
     Dates: start: 20121113, end: 20121118
  29. VANCOMYCIN [Concomitant]
     Route: 065
     Dates: start: 20121214, end: 20121220
  30. CHLORHEXIDINE GLUCONATE [Concomitant]
     Indication: PRODUCT USED FOR UNKNOWN INDICATION
     Route: 061
     Dates: start: 20121118, end: 20121123
  31. HEPARIN [Concomitant]
     Indication: PRODUCT USED FOR UNKNOWN INDICATION
     Route: 065
     Dates: start: 20121119, end: 20121226
  32. METOLAZONE [Concomitant]
     Indication: PRODUCT USED FOR UNKNOWN INDICATION
     Route: 065
     Dates: start: 20121119, end: 20121127
  33. LANSOPRAZOLE [Concomitant]
     Indication: PRODUCT USED FOR UNKNOWN INDICATION
     Route: 065
     Dates: start: 20121119, end: 20121226
  34. NITRO [Concomitant]
     Indication: PRODUCT USED FOR UNKNOWN INDICATION
     Route: 065
     Dates: start: 20121122, end: 20121128
  35. CEFTRIAXONE [Concomitant]
     Indication: PRODUCT USED FOR UNKNOWN INDICATION
     Route: 065
     Dates: start: 20121130, end: 20121206
  36. EPOETIN ALFA [Concomitant]
     Indication: PRODUCT USED FOR UNKNOWN INDICATION
     Route: 065
     Dates: start: 20121205, end: 20121210
  37. MULTIVITAMINS [Concomitant]
     Indication: PRODUCT USED FOR UNKNOWN INDICATION
     Route: 065
     Dates: start: 20121205, end: 20121226
  38. CYCLOPHOSPHAMIDE [Concomitant]
     Indication: PRODUCT USED FOR UNKNOWN INDICATION
     Route: 065
     Dates: start: 20121207, end: 20121207
  39. HYDROMORPHONE [Concomitant]
     Indication: PRODUCT USED FOR UNKNOWN INDICATION
     Route: 065
     Dates: start: 20121226, end: 20121226
  40. INSULIN [Concomitant]
     Indication: PRODUCT USED FOR UNKNOWN INDICATION
     Route: 065
     Dates: start: 20121106, end: 20121225
  41. REVLIMID [Suspect]
     Indication: PLASMA CELL MYELOMA
     Dosage: 10 MILLIGRAM
     Route: 048
     Dates: start: 20120704, end: 20120822
  42. DEXAMETHASONE [Suspect]
     Indication: PLASMA CELL MYELOMA
     Dosage: 28 MILLIGRAM
     Route: 048
     Dates: start: 20120704, end: 20120822
  43. DEXAMETHASONE [Suspect]
     Dosage: 40 MILLIGRAM
     Route: 048
     Dates: start: 20120704, end: 20120822
  44. ELOTUZUMAB [Suspect]
     Indication: PLASMA CELL MYELOMA
     Route: 065
  45. PACKED RED BLOOD CELLS [Concomitant]
     Indication: ADVERSE EVENT
     Dosage: 2 IU (INTERNATIONAL UNIT)
     Route: 041
     Dates: start: 20120714, end: 20120714
  46. METFORMIN [Concomitant]
     Indication: ADVERSE EVENT
     Route: 065
     Dates: start: 20120804, end: 20120805
  47. METFORMIN [Concomitant]
     Route: 065
     Dates: start: 20120808
  48. BRIMATOPROST OPTHALMIC [Concomitant]
     Indication: ADVERSE EVENT
     Route: 047
     Dates: start: 20120726, end: 20120805
  49. BRIMATOPROST OPTHALMIC [Concomitant]
     Route: 047
     Dates: start: 20121106, end: 20121126
  50. BRIMONIDINE [Concomitant]
     Indication: ADVERSE EVENT
     Route: 047
     Dates: start: 20120726, end: 20120805
  51. BRIMONIDINE [Concomitant]
     Route: 047
     Dates: start: 20121106, end: 20121126
  52. AMLODIPINE [Concomitant]
     Indication: ADVERSE EVENT
     Route: 065
     Dates: start: 20120726, end: 20120805
  53. AMLODIPINE [Concomitant]
     Route: 065
     Dates: start: 20121106, end: 20121220
  54. PHYTODIONE [Concomitant]
     Indication: ADVERSE EVENT
     Route: 065
     Dates: start: 20120726, end: 20120727
  55. PHYTODIONE [Concomitant]
     Route: 065
     Dates: start: 20121106, end: 20121121
  56. FLUCONAZOLE [Concomitant]
     Indication: ADVERSE EVENT
     Route: 065
     Dates: start: 20120726, end: 20120801
  57. DALTEPARIN [Concomitant]
     Indication: ADVERSE EVENT
     Route: 065
     Dates: start: 20120726, end: 20120805
  58. SODIUM CHLORIDE [Concomitant]
     Indication: ADVERSE EVENT
     Route: 065
     Dates: start: 20120726, end: 20120727
  59. SODIUM CHLORIDE [Concomitant]
     Route: 065
     Dates: start: 20120728, end: 20120803
  60. SODIUM CHLORIDE [Concomitant]
     Route: 065
     Dates: start: 20121106, end: 20121123
  61. INSULIN ASPART [Concomitant]
     Indication: ADVERSE EVENT
     Route: 065
     Dates: start: 20120726, end: 20120805
  62. INSULIN ASPART [Concomitant]
     Route: 065
     Dates: start: 20121225, end: 20121226
  63. DEXTROSE IN WATER [Concomitant]
     Indication: ADVERSE EVENT
     Dosage: 5 PERCENT
     Route: 065
     Dates: start: 20120727, end: 20120728
  64. DEXTROSE IN WATER [Concomitant]
     Dosage: 5 PERCENT
     Route: 065
     Dates: start: 20121106, end: 20121108
  65. DEXTROSE IN WATER [Concomitant]
     Dosage: 50 PERCENT
     Route: 065
     Dates: start: 20121120, end: 20121122

REACTIONS (4)
  - Renal failure acute [Fatal]
  - Vomiting [Recovered/Resolved]
  - Renal failure acute [Recovered/Resolved]
  - Anaemia [Not Recovered/Not Resolved]
